FAERS Safety Report 8541337-4 (Version None)
Quarter: 2012Q3

REPORT INFORMATION
  Report Type: 
  Country: None (occurrence: None)
  Receive Date: 20120726
  Receipt Date: 20120726
  Transmission Date: 20120928
  Serious: Yes (Hospitalization)
  Sender: FDA-Public Use
  Company Number: CH-BAYER-2012-074741

PATIENT
  Age: 74 Year
  Sex: Female

DRUGS (5)
  1. METFORMIN HCL [Concomitant]
     Dosage: 500 MG, BID
  2. ATORVASTATIN CALCIUM [Concomitant]
     Dosage: 20 MG, QD
  3. ASPIRIN [Suspect]
     Dosage: 100 MG, QD
     Dates: start: 20120401, end: 20120510
  4. METOPROLOL TARTRATE [Concomitant]
     Dosage: 50 MG, QD
  5. PRASUGREL [Suspect]
     Dosage: UNK
     Dates: start: 20120401, end: 20120510

REACTIONS (4)
  - SYNCOPE [None]
  - MELAENA [None]
  - GASTRIC ULCER [None]
  - ANAEMIA [None]
